FAERS Safety Report 6279032-7 (Version None)
Quarter: 2009Q3

REPORT INFORMATION
  Report Type: 
  Country: None (occurrence: None)
  Receive Date: 20090723
  Receipt Date: 20090714
  Transmission Date: 20100115
  Serious: Yes (Hospitalization, Other)
  Sender: FDA-Public Use
  Company Number: DE-JNJFOC-20080605969

PATIENT
  Sex: Male
  Weight: 70 kg

DRUGS (1)
  1. INFLIXIMAB [Suspect]
     Indication: CROHN'S DISEASE
     Route: 042

REACTIONS (4)
  - ABSCESS [None]
  - CROHN'S DISEASE [None]
  - FISTULA [None]
  - RECTAL STENOSIS [None]
